FAERS Safety Report 18622348 (Version 1)
Quarter: 2020Q4

REPORT INFORMATION
  Report Type: Spontaneous
  Country: US (occurrence: US)
  Receive Date: 20201215
  Receipt Date: 20201215
  Transmission Date: 20210114
  Serious: Yes (Other)
  Sender: FDA-Public Use
  Company Number: None

PATIENT
  Age: 17 Year
  Sex: Male
  Weight: 100 kg

DRUGS (4)
  1. FAMOTIDINE. [Concomitant]
     Active Substance: FAMOTIDINE
     Dates: start: 20201212
  2. REMDESIVIR INJECTABLE VIAL [Suspect]
     Active Substance: REMDESIVIR
     Route: 042
     Dates: start: 20201212, end: 20201214
  3. ENOXAPARIN [Concomitant]
     Active Substance: ENOXAPARIN
     Dates: start: 20201212
  4. DEXAMETHASONE. [Concomitant]
     Active Substance: DEXAMETHASONE
     Dates: start: 20201212

REACTIONS (2)
  - Transaminases increased [None]
  - Therapy cessation [None]

NARRATIVE: CASE EVENT DATE: 20201215
